FAERS Safety Report 9251160 (Version 1)
Quarter: 2013Q2

REPORT INFORMATION
  Report Type: Spontaneous
  Country: US (occurrence: US)
  Receive Date: 20130424
  Receipt Date: 20130424
  Transmission Date: 20140414
  Serious: Yes (Disabling)
  Sender: FDA-Public Use
  Company Number: US-PFIZER INC-2013126999

PATIENT
  Age: 58 Year
  Sex: Female
  Weight: 81.63 kg

DRUGS (3)
  1. EFFEXOR XR [Suspect]
     Indication: DEPRESSION
     Dosage: 150 MG, 1X/DAY
     Dates: start: 201011
  2. CHOLECALCIFEROL [Suspect]
     Indication: MULTIPLE FRACTURES
     Dosage: 50000 IU, UNK
     Dates: start: 201210
  3. ASPIRIN [Concomitant]
     Indication: CARDIAC DISORDER
     Dosage: 81 MG, 1X/DAY

REACTIONS (2)
  - Multiple fractures [Not Recovered/Not Resolved]
  - Drug ineffective [Unknown]
